FAERS Safety Report 14897482 (Version 3)
Quarter: 2018Q2

REPORT INFORMATION
  Report Type: Spontaneous
  Country: GB (occurrence: GB)
  Receive Date: 20180515
  Receipt Date: 20180604
  Transmission Date: 20180711
  Serious: Yes (Death, Life-Threatening, Hospitalization, Other)
  Sender: FDA-Public Use
  Company Number: GB-PFIZER INC-2018189411

PATIENT
  Age: 21 Year
  Sex: Female

DRUGS (4)
  1. PREGABALIN. [Suspect]
     Active Substance: PREGABALIN
     Dosage: UNK
  2. MORPHINE SULFATE. [Suspect]
     Active Substance: MORPHINE SULFATE
  3. HEROIN [Suspect]
     Active Substance: DIAMORPHINE
  4. CANNABIS [Suspect]
     Active Substance: CANNABIS SATIVA SUBSP. INDICA TOP

REACTIONS (8)
  - Cardiac arrest [Unknown]
  - General physical health deterioration [Unknown]
  - Dyspnoea [Unknown]
  - Drug dependence [Fatal]
  - Snoring [Unknown]
  - Depressed level of consciousness [Fatal]
  - Drug abuse [Unknown]
  - Chest pain [Unknown]
